FAERS Safety Report 17618443 (Version 1)
Quarter: 2020Q2

REPORT INFORMATION
  Report Type: Spontaneous
  Country: FR (occurrence: FR)
  Receive Date: 20200402
  Receipt Date: 20200402
  Transmission Date: 20200713
  Serious: Yes (Other)
  Sender: FDA-Public Use
  Company Number: FR-BAUSCH-BL-2020-008980

PATIENT
  Age: 75 Year
  Sex: Female
  Weight: 115 kg

DRUGS (11)
  1. GRANOCYTE [Suspect]
     Active Substance: LENOGRASTIM
     Indication: COLONY STIMULATING FACTOR THERAPY
     Route: 058
     Dates: start: 20200114, end: 20200119
  2. DAFALGAN CODEINE [Concomitant]
     Active Substance: ACETAMINOPHEN\CODEINE PHOSPHATE
     Indication: PAIN
     Dosage: 1-1-1
     Route: 048
  3. CARBOPLATINE ACCORD [Suspect]
     Active Substance: CARBOPLATIN
     Indication: ENDOMETRIAL CANCER
     Dosage: 1 CYCLICAL
     Route: 042
     Dates: start: 20191219, end: 20200131
  4. LANSOPRAZOLE. [Concomitant]
     Active Substance: LANSOPRAZOLE
     Indication: GASTRIC ULCER
     Dosage: 15 MG IN THE EVENING
     Route: 048
  5. DEXAMETHASONE. [Suspect]
     Active Substance: DEXAMETHASONE
     Indication: PROPHYLAXIS OF NAUSEA AND VOMITING
     Dosage: 1 CYCLICAL
     Route: 042
     Dates: start: 20191219, end: 20200131
  6. EMEND [Suspect]
     Active Substance: APREPITANT
     Dosage: J1
     Route: 048
     Dates: start: 20191219, end: 20200131
  7. PACLITAXEL ACCORD [Suspect]
     Active Substance: PACLITAXEL
     Indication: ENDOMETRIAL CANCER
     Dosage: 1 CYCLICAL
     Route: 042
     Dates: start: 20191219, end: 20200131
  8. ZOPHREN [Suspect]
     Active Substance: ONDANSETRON
     Indication: PROPHYLAXIS OF NAUSEA AND VOMITING
     Dosage: STRENGTH: 8 MG/4 ML, 1 CYCLICAL
     Route: 042
     Dates: start: 20191219, end: 20200131
  9. PREDNISONE. [Concomitant]
     Active Substance: PREDNISONE
     Indication: PRODUCT USED FOR UNKNOWN INDICATION
     Dosage: 40MG IN THE MORNING
     Route: 048
  10. EMEND [Suspect]
     Active Substance: APREPITANT
     Indication: PROPHYLAXIS OF NAUSEA AND VOMITING
     Dosage: J2-J3
     Route: 048
     Dates: start: 20191219, end: 20200131
  11. POLARAMINE [Suspect]
     Active Substance: DEXCHLORPHENIRAMINE MALEATE
     Indication: ALLERGY PROPHYLAXIS
     Dosage: STRENGTH: 5 MG/1 ML, 1 CYCLICAL
     Route: 042
     Dates: start: 20191219, end: 20200131

REACTIONS (1)
  - Oedema peripheral [Recovering/Resolving]

NARRATIVE: CASE EVENT DATE: 20200116
